FAERS Safety Report 21870051 (Version 23)
Quarter: 2025Q2

REPORT INFORMATION
  Report Type: Report from Study
  Country: US (occurrence: US)
  Receive Date: 20230117
  Receipt Date: 20250531
  Transmission Date: 20250716
  Serious: Yes (Hospitalization, Other)
  Sender: TAKEDA
  Company Number: US-TAKEDA-US202031560

PATIENT
  Age: 70 Year
  Sex: Female
  Weight: 89.81 kg

DRUGS (48)
  1. HUMAN IMMUNOGLOBULIN G [Suspect]
     Active Substance: HUMAN IMMUNOGLOBULIN G
     Indication: Immunodeficiency common variable
     Dosage: 35 GRAM, Q3WEEKS
     Dates: start: 20101202
  2. HUMAN IMMUNOGLOBULIN G [Suspect]
     Active Substance: HUMAN IMMUNOGLOBULIN G
     Indication: Primary immunodeficiency syndrome
     Dosage: 35 GRAM, Q3WEEKS
     Dates: start: 20140429
  3. HUMAN IMMUNOGLOBULIN G [Suspect]
     Active Substance: HUMAN IMMUNOGLOBULIN G
     Dosage: 35 GRAM, Q3WEEKS
     Dates: start: 20220525
  4. HUMAN IMMUNOGLOBULIN G [Suspect]
     Active Substance: HUMAN IMMUNOGLOBULIN G
  5. MODERNA COVID-19 VACCINE [Suspect]
     Active Substance: ELASOMERAN
     Indication: Product used for unknown indication
  6. OMEPRAZOLE [Concomitant]
     Active Substance: OMEPRAZOLE
  7. EZETIMIBE [Concomitant]
     Active Substance: EZETIMIBE
  8. BACTRIM [Concomitant]
     Active Substance: SULFAMETHOXAZOLE\TRIMETHOPRIM
  9. PRAVASTATIN SODIUM [Concomitant]
     Active Substance: PRAVASTATIN SODIUM
  10. LORAZEPAM [Concomitant]
     Active Substance: LORAZEPAM
  11. ALBUTEROL SULFATE [Concomitant]
     Active Substance: ALBUTEROL SULFATE
  12. ALENDRONATE SODIUM [Concomitant]
     Active Substance: ALENDRONATE SODIUM
  13. VITAMIN D3 [Concomitant]
     Active Substance: CHOLECALCIFEROL
  14. LISINOPRIL [Concomitant]
     Active Substance: LISINOPRIL
  15. VASCEPA [Concomitant]
     Active Substance: ICOSAPENT ETHYL
  16. VENTOLIN HFA [Concomitant]
     Active Substance: ALBUTEROL SULFATE
  17. TRULICITY [Concomitant]
     Active Substance: DULAGLUTIDE
  18. SYNTHROID [Concomitant]
     Active Substance: LEVOTHYROXINE SODIUM
  19. MINOXIDIL [Concomitant]
     Active Substance: MINOXIDIL
  20. SERTRALINE HYDROCHLORIDE [Concomitant]
     Active Substance: SERTRALINE HYDROCHLORIDE
  21. WELLBUTRIN SR [Concomitant]
     Active Substance: BUPROPION HYDROCHLORIDE
  22. AMBIEN [Concomitant]
     Active Substance: ZOLPIDEM TARTRATE
  23. PRAVASTATIN [Concomitant]
     Active Substance: PRAVASTATIN
  24. DIPHENHYDRAMINE HYDROCHLORIDE [Concomitant]
     Active Substance: DIPHENHYDRAMINE HYDROCHLORIDE
  25. EPINEPHRINE [Concomitant]
     Active Substance: EPINEPHRINE
  26. ZOLOFT [Concomitant]
     Active Substance: SERTRALINE HYDROCHLORIDE
  27. SODIUM CHLORIDE [Concomitant]
     Active Substance: SODIUM CHLORIDE
  28. IBUPROFEN [Concomitant]
     Active Substance: IBUPROFEN
  29. LEVEMIR [Concomitant]
     Active Substance: INSULIN DETEMIR
  30. ONDANSETRON [Concomitant]
     Active Substance: ONDANSETRON
  31. DIPHENHYDRAMINE [Concomitant]
     Active Substance: DIPHENHYDRAMINE
  32. TRICOR [Concomitant]
     Active Substance: FENOFIBRATE
  33. SODIUM CHLORIDE [Concomitant]
     Active Substance: SODIUM CHLORIDE
  34. ADVAIR HFA [Concomitant]
     Active Substance: FLUTICASONE PROPIONATE\SALMETEROL XINAFOATE
  35. NOVOLOG [Concomitant]
     Active Substance: INSULIN ASPART
  36. INSULIN NOS [Concomitant]
     Active Substance: INSULIN NOS
  37. HEPARIN [Concomitant]
     Active Substance: HEPARIN SODIUM
  38. CHOLESTYRAMINE [Concomitant]
     Active Substance: CHOLESTYRAMINE
  39. FOSAMAX [Concomitant]
     Active Substance: ALENDRONATE SODIUM
  40. CHOLECALCIFEROL [Concomitant]
     Active Substance: CHOLECALCIFEROL
  41. THERALITH [Concomitant]
  42. ADVIL [Concomitant]
     Active Substance: IBUPROFEN
  43. ASPIRIN [Concomitant]
     Active Substance: ASPIRIN
  44. CODEINE PHOSPHATE\GUAIFENESIN [Concomitant]
     Active Substance: CODEINE PHOSPHATE\GUAIFENESIN
  45. ZETIA [Concomitant]
     Active Substance: EZETIMIBE
  46. CLINDAMYCIN HYDROCHLORIDE [Concomitant]
     Active Substance: CLINDAMYCIN HYDROCHLORIDE
  47. VITAMIN D [Concomitant]
     Active Substance: VITAMIN D NOS
  48. AZITHROMYCIN [Concomitant]
     Active Substance: AZITHROMYCIN

REACTIONS (40)
  - Respiratory syncytial virus infection [Not Recovered/Not Resolved]
  - Viral infection [Unknown]
  - Sepsis [Unknown]
  - Vulvovaginal mycotic infection [Unknown]
  - Oral candidiasis [Unknown]
  - Influenza [Recovering/Resolving]
  - Asthma [Unknown]
  - Rib fracture [Recovering/Resolving]
  - Nasopharyngitis [Recovering/Resolving]
  - Allergy to animal [Unknown]
  - Dyspnoea [Recovering/Resolving]
  - Infusion related reaction [Unknown]
  - Illness [Unknown]
  - Allergy to plants [Unknown]
  - Bronchitis [Not Recovered/Not Resolved]
  - Productive cough [Not Recovered/Not Resolved]
  - Tooth abscess [Unknown]
  - Fall [Unknown]
  - Sleep disorder [Unknown]
  - Sinus disorder [Unknown]
  - Fungal infection [Unknown]
  - Bacterial infection [Unknown]
  - Epistaxis [Recovered/Resolved]
  - Heart rate increased [Unknown]
  - Rash pruritic [Unknown]
  - Nasal congestion [Unknown]
  - Blood pressure increased [Unknown]
  - Malaise [Unknown]
  - Arthralgia [Unknown]
  - Back pain [Unknown]
  - Pyrexia [Unknown]
  - Nausea [Unknown]
  - Immunisation reaction [Recovered/Resolved]
  - COVID-19 [Not Recovered/Not Resolved]
  - Swelling face [Recovered/Resolved]
  - Feeling abnormal [Unknown]
  - Eye swelling [Recovered/Resolved]
  - Anxiety [Unknown]
  - Rash [Recovered/Resolved]
  - Fatigue [Unknown]

NARRATIVE: CASE EVENT DATE: 20220605
